FAERS Safety Report 24613518 (Version 1)
Quarter: 2024Q4

REPORT INFORMATION
  Report Type: Spontaneous
  Country: US (occurrence: US)
  Receive Date: 20241113
  Receipt Date: 20241113
  Transmission Date: 20250115
  Serious: No
  Sender: ORPHALAN
  Company Number: US-ORPHALAN-US-ORP-24-00053

PATIENT
  Sex: Female
  Weight: 79.9 kg

DRUGS (8)
  1. CUVRIOR [Suspect]
     Active Substance: TRIENTINE TETRAHYDROCHLORIDE
     Indication: Hepato-lenticular degeneration
     Dosage: 600 MILLIGRAM, BID
     Route: 048
     Dates: start: 20231003
  2. NADOLOL [Concomitant]
     Active Substance: NADOLOL
     Indication: Product used for unknown indication
     Dosage: 20 MILLIGRAM, QD
     Route: 048
  3. SPIRONOLACTONE [Concomitant]
     Active Substance: SPIRONOLACTONE
     Indication: Product used for unknown indication
     Dosage: 100 MILLIGRAM, BID
     Route: 048
  4. VENLAFAXINE [Concomitant]
     Active Substance: VENLAFAXINE HYDROCHLORIDE
     Indication: Product used for unknown indication
     Dosage: 150 MILLIGRAM, BID
     Route: 048
  5. VITAMIN D [Concomitant]
     Active Substance: VITAMIN D NOS
     Indication: Product used for unknown indication
     Dosage: 5000 UNK, QD
     Route: 048
  6. MENAQUINONE 6 [Concomitant]
     Active Substance: MENAQUINONE 6
     Indication: Product used for unknown indication
     Dosage: 180 MICROGRAM, QD
     Route: 048
  7. MAGNESIUM [Concomitant]
     Active Substance: MAGNESIUM
     Indication: Product used for unknown indication
     Dosage: 235 MILLIGRAM, QD
     Route: 048
  8. VITAMINS [Concomitant]
     Active Substance: VITAMINS
     Indication: Product used for unknown indication
     Dosage: UNK, QD
     Route: 048

REACTIONS (2)
  - Anxiety [Unknown]
  - Depression [Unknown]
